FAERS Safety Report 16318541 (Version 1)
Quarter: 2019Q2

REPORT INFORMATION
  Report Type: Spontaneous
  Country: US (occurrence: US)
  Receive Date: 20190516
  Receipt Date: 20190516
  Transmission Date: 20190711
  Serious: No
  Sender: FDA-Public Use
  Company Number: US-GLENMARK PHARMACEUTICALS-2019GMK039446

PATIENT

DRUGS (1)
  1. MUPIROCIN OINTMENT USP, 2% [Suspect]
     Active Substance: MUPIROCIN
     Indication: SKIN INFECTION
     Dosage: UNK (3 TIMES PER WEEK)
     Route: 061

REACTIONS (4)
  - Burning sensation [Recovered/Resolved]
  - Expired product administered [Unknown]
  - Pruritus [Not Recovered/Not Resolved]
  - Off label use [Unknown]
